FAERS Safety Report 12874660 (Version 1)
Quarter: 2016Q4

REPORT INFORMATION
  Report Type: Report from Study
  Country: US (occurrence: US)
  Receive Date: 20161021
  Receipt Date: 20161021
  Transmission Date: 20170207
  Serious: Yes (Hospitalization, Other)
  Sender: FDA-Public Use
  Company Number: US-AMGEN-USASL2016142447

PATIENT
  Age: 70 Year
  Sex: Female

DRUGS (2)
  1. COLLAGEN [Concomitant]
     Active Substance: COLLAGEN
  2. PROLIA [Suspect]
     Active Substance: DENOSUMAB
     Indication: OSTEOPOROSIS
     Dosage: UNK
     Route: 065
     Dates: start: 2013

REACTIONS (7)
  - Infection [Unknown]
  - Musculoskeletal stiffness [Unknown]
  - Spinal compression fracture [Unknown]
  - Device failure [Not Recovered/Not Resolved]
  - Hernia [Unknown]
  - Abasia [Unknown]
  - Fall [Unknown]

NARRATIVE: CASE EVENT DATE: 201507
